FAERS Safety Report 4578436-8 (Version None)
Quarter: 2005Q1

REPORT INFORMATION
  Report Type: 
  Country: None (occurrence: None)
  Receive Date: 20050203
  Receipt Date: 20050203
  Transmission Date: 20050727
  Serious: Yes (Hospitalization, Other)
  Sender: FDA-Public Use
  Company Number: None

PATIENT
  Age: 52 Year
  Sex: Female
  Weight: 97.977 kg

DRUGS (1)
  1. BEXTRA [Suspect]
     Indication: TENDON DISORDER
     Dosage: 20MG TWICE DAILY
     Dates: start: 20030201, end: 20030514

REACTIONS (12)
  - ATRIAL FIBRILLATION [None]
  - BLOOD PRESSURE INCREASED [None]
  - BURNING SENSATION [None]
  - CHEST PAIN [None]
  - DIFFICULTY IN WALKING [None]
  - DIZZINESS [None]
  - DYSPNOEA [None]
  - FEELING HOT [None]
  - GENERALISED OEDEMA [None]
  - PRURITUS [None]
  - SKIN DISORDER [None]
  - VISION BLURRED [None]
